FAERS Safety Report 5377878-0 (Version None)
Quarter: 2007Q2

REPORT INFORMATION
  Report Type: 
  Country: None (occurrence: None)
  Receive Date: 20070629
  Receipt Date: 20070613
  Transmission Date: 20071010
  Serious: Yes (Other)
  Sender: FDA-Public Use
  Company Number: 07-001326

PATIENT
  Age: 71 Year
  Sex: Female

DRUGS (2)
  1. ERYC [Suspect]
     Dosage: 1 G, ORAL
     Route: 048
  2. WARFARIN SODIUM [Suspect]

REACTIONS (2)
  - DRUG INTERACTION [None]
  - PROTHROMBIN TIME PROLONGED [None]
